FAERS Safety Report 9779445 (Version 1)
Quarter: 2013Q4

REPORT INFORMATION
  Report Type: Spontaneous
  Country: US (occurrence: US)
  Receive Date: 20131223
  Receipt Date: 20131223
  Transmission Date: 20140711
  Serious: Yes (Hospitalization)
  Sender: FDA-Public Use
  Company Number: US-ENDO PHARMACEUTICALS INC.-CARI20130016

PATIENT
  Age: 65 Year
  Sex: Female

DRUGS (4)
  1. CARISOPRODOL TABLETS 350MG [Suspect]
     Indication: PAIN
     Dosage: 350 MG
     Route: 048
  2. CARISOPRODOL TABLETS 350MG [Suspect]
     Indication: MUSCLE SPASMS
     Route: 048
  3. CARISOPRODOL TABLETS 350MG [Suspect]
     Indication: ARTHRITIS
  4. NORCO [Concomitant]
     Indication: PAIN
     Dosage: UNKNOWN
     Route: 048

REACTIONS (4)
  - Myocardial infarction [Unknown]
  - Pneumonia [Recovered/Resolved]
  - Blood pressure increased [Not Recovered/Not Resolved]
  - Drug ineffective [Not Recovered/Not Resolved]
